FAERS Safety Report 10771452 (Version 1)
Quarter: 2015Q1

REPORT INFORMATION
  Report Type: Spontaneous
  Country: GR (occurrence: GR)
  Receive Date: 20150206
  Receipt Date: 20150206
  Transmission Date: 20150721
  Serious: Yes (Other)
  Sender: FDA-Public Use
  Company Number: GR-GLAXOSMITHKLINE-GR2015GSK015150

PATIENT
  Age: 20 Year
  Sex: Female

DRUGS (2)
  1. LAMOTRIGINE. [Suspect]
     Active Substance: LAMOTRIGINE
     Indication: ANXIETY DISORDER
  2. FLUOXETINE [Suspect]
     Active Substance: FLUOXETINE\FLUOXETINE HYDROCHLORIDE
     Indication: ANXIETY DISORDER

REACTIONS (8)
  - Drug reaction with eosinophilia and systemic symptoms [Unknown]
  - Liver function test abnormal [Recovering/Resolving]
  - Splenomegaly [Recovering/Resolving]
  - Angina pectoris [Recovering/Resolving]
  - Rash macular [Recovering/Resolving]
  - Lymphadenopathy [Unknown]
  - Leukopenia [Unknown]
  - Pyrexia [Recovering/Resolving]
